FAERS Safety Report 21356894 (Version 1)
Quarter: 2022Q3

REPORT INFORMATION
  Report Type: Report from Study
  Country: US (occurrence: US)
  Receive Date: 20220920
  Receipt Date: 20220920
  Transmission Date: 20221027
  Serious: Yes (Other)
  Sender: FDA-Public Use
  Company Number: US-BIOGEN-2022BI01155489

PATIENT
  Sex: Female

DRUGS (1)
  1. VUMERITY [Suspect]
     Active Substance: DIROXIMEL FUMARATE
     Indication: Multiple sclerosis
     Route: 050
     Dates: start: 20220901

REACTIONS (5)
  - Diabetes mellitus [Unknown]
  - Systemic lupus erythematosus [Unknown]
  - Hypothyroidism [Unknown]
  - Fall [Recovered/Resolved]
  - Fatigue [Unknown]
